FAERS Safety Report 8352147-5 (Version None)
Quarter: 2012Q2

REPORT INFORMATION
  Report Type: 
  Country: None (occurrence: None)
  Receive Date: 20120510
  Receipt Date: 20120510
  Transmission Date: 20120825
  Serious: Yes (Other)
  Sender: FDA-Public Use
  Company Number: None

PATIENT
  Age: 66 Year
  Sex: Male
  Weight: 85.7 kg

DRUGS (8)
  1. TEGRETOL [Concomitant]
  2. KEPPRA [Concomitant]
  3. POSACONAZOLE [Concomitant]
  4. BACTRIM DS [Concomitant]
  5. ACYCLOVIR [Concomitant]
  6. FOLIC ACID [Concomitant]
  7. OFATUMUMAB [Suspect]
     Indication: CHRONIC LYMPHOCYTIC LEUKAEMIA
     Dosage: 1000MG, WEEKLY, IV
     Route: 042
     Dates: start: 20120501
  8. ALLOPURINOL [Concomitant]

REACTIONS (5)
  - ANGIOEDEMA [None]
  - DRUG INTERACTION [None]
  - INFUSION RELATED REACTION [None]
  - THROAT TIGHTNESS [None]
  - COUGH [None]
